FAERS Safety Report 10055598 (Version 1)
Quarter: 2014Q2

REPORT INFORMATION
  Report Type: Spontaneous
  Country: US (occurrence: None)
  Receive Date: 20140402
  Receipt Date: 20140402
  Transmission Date: 20141212
  Serious: Yes (Other)
  Sender: FDA-Public Use
  Company Number: None

PATIENT
  Sex: Female

DRUGS (4)
  1. LAMOTRIGINE (GENERIC FOR LAIMCTAL) [Suspect]
     Indication: CONVULSION
     Route: 048
  2. LAMOTRIGINE (GENERIC FOR LAIMCTAL) [Suspect]
     Route: 048
  3. LAMOTRIGINE (GENERIC FOR LAIMCTAL) [Suspect]
     Route: 048
  4. LAMICTAL [Concomitant]

REACTIONS (2)
  - Drug ineffective [None]
  - Convulsion [None]
